FAERS Safety Report 4976302-7 (Version None)
Quarter: 2006Q2

REPORT INFORMATION
  Report Type: 
  Country: None (occurrence: None)
  Receive Date: 20060412
  Receipt Date: 20060403
  Transmission Date: 20061013
  Serious: Yes (Hospitalization)
  Sender: FDA-Public Use
  Company Number: 2006035503

PATIENT
  Age: 65 Year
  Sex: Male
  Weight: 88 kg

DRUGS (6)
  1. LYRICA [Suspect]
     Indication: NEURALGIA
     Dosage: 150 MG (75 MG, 2 IN 1 D), ORAL
     Route: 048
     Dates: start: 20060120, end: 20060123
  2. CITALOPRAM [Concomitant]
  3. ALPRAZOLAM [Concomitant]
  4. ACETYLSALICYLIC ACID SRT [Concomitant]
  5. CRESTOR [Concomitant]
  6. ACETAMINOPHEN [Concomitant]

REACTIONS (3)
  - ANXIETY [None]
  - ARRHYTHMIA [None]
  - PALPITATIONS [None]
